FAERS Safety Report 21033337 (Version 1)
Quarter: 2022Q3

REPORT INFORMATION
  Report Type: Spontaneous
  Country: US (occurrence: US)
  Receive Date: 20220701
  Receipt Date: 20220701
  Transmission Date: 20221027
  Serious: Yes (Other)
  Sender: FDA-Public Use
  Company Number: US-SA-SAC20220628001554

PATIENT
  Age: 80 Year
  Sex: Male

DRUGS (2)
  1. ZANTAC [Suspect]
     Active Substance: RANITIDINE HYDROCHLORIDE
     Indication: Dyspepsia
     Dosage: 75 MG, QD
     Dates: start: 201001, end: 201401
  2. ZANTAC [Suspect]
     Active Substance: RANITIDINE HYDROCHLORIDE
     Indication: Gastric ulcer

REACTIONS (4)
  - Bladder cancer stage III [Not Recovered/Not Resolved]
  - Hepatic cancer stage III [Not Recovered/Not Resolved]
  - Pancreatic carcinoma stage III [Not Recovered/Not Resolved]
  - Pancreatic disorder [Unknown]

NARRATIVE: CASE EVENT DATE: 20200701
